FAERS Safety Report 5660429-0 (Version None)
Quarter: 2008Q1

REPORT INFORMATION
  Report Type: 
  Country: None (occurrence: None)
  Receive Date: 20080311
  Receipt Date: 20071026
  Transmission Date: 20080703
  Serious: No
  Sender: FDA-Public Use
  Company Number: US-BAYER-200713515BCC

PATIENT
  Age: 74 Year
  Sex: Female
  Weight: 57 kg

DRUGS (6)
  1. ALEVE [Suspect]
     Indication: ARTHRALGIA
     Dosage: UNIT DOSE: 220 MG
     Route: 048
     Dates: start: 20071024
  2. MELATONIN [Concomitant]
  3. MAGNESIUM [Concomitant]
  4. CALCIUM [Concomitant]
  5. ACTONEL [Concomitant]
  6. LISINOPRIL [Concomitant]

REACTIONS (1)
  - ARTHRALGIA [None]
